FAERS Safety Report 11251452 (Version 1)
Quarter: 2015Q3

REPORT INFORMATION
  Report Type: Spontaneous
  Country: US (occurrence: US)
  Receive Date: 20150708
  Receipt Date: 20150708
  Transmission Date: 20151125
  Serious: Yes (Hospitalization, Other)
  Sender: FDA-Public Use
  Company Number: US-ELI_LILLY_AND_COMPANY-US201202007440

PATIENT

DRUGS (2)
  1. TARCEVA [Concomitant]
     Active Substance: ERLOTINIB HYDROCHLORIDE
     Dosage: UNK, UNKNOWN
  2. GEMZAR [Suspect]
     Active Substance: GEMCITABINE HYDROCHLORIDE
     Indication: PANCREATIC CARCINOMA
     Dosage: UNK, UNKNOWN
     Dates: start: 200906, end: 201111

REACTIONS (6)
  - Fatigue [Unknown]
  - White blood cell count decreased [Unknown]
  - Myocardial infarction [Unknown]
  - Blood count abnormal [Unknown]
  - Neoplasm progression [Unknown]
  - Rash [Unknown]
